FAERS Safety Report 12421579 (Version 1)
Quarter: 2016Q2

REPORT INFORMATION
  Report Type: Spontaneous
  Country: FR (occurrence: FR)
  Receive Date: 20160531
  Receipt Date: 20160531
  Transmission Date: 20160815
  Serious: Yes (Death)
  Sender: FDA-Public Use
  Company Number: FR-SA-2016SA099967

PATIENT
  Age: 51 Year
  Sex: Female

DRUGS (3)
  1. BACLOFEN. [Suspect]
     Active Substance: BACLOFEN
     Route: 065
  2. STILNOX [Suspect]
     Active Substance: ZOLPIDEM TARTRATE
     Route: 065
  3. IMOVANE [Suspect]
     Active Substance: ZOPICLONE
     Route: 065

REACTIONS (2)
  - Coma [Fatal]
  - Brain oedema [Fatal]
